FAERS Safety Report 12613451 (Version 1)
Quarter: 2016Q3

REPORT INFORMATION
  Report Type: Spontaneous
  Country: CA (occurrence: CA)
  Receive Date: 20160802
  Receipt Date: 20160802
  Transmission Date: 20161109
  Serious: Yes (Life-Threatening, Hospitalization, Other)
  Sender: FDA-Public Use
  Company Number: CA-MACLEODS PHARMACEUTICALS US LTD-MAC2016002958

PATIENT

DRUGS (6)
  1. PHENYTOIN. [Interacting]
     Active Substance: PHENYTOIN
     Indication: PRODUCT USED FOR UNKNOWN INDICATION
     Dosage: UNK
     Route: 065
  2. PRIMIDONE. [Interacting]
     Active Substance: PRIMIDONE
     Indication: PRODUCT USED FOR UNKNOWN INDICATION
     Dosage: UNK
     Route: 065
  3. QUETIAPINE. [Interacting]
     Active Substance: QUETIAPINE
     Indication: PRODUCT USED FOR UNKNOWN INDICATION
     Dosage: UNK
     Route: 065
  4. BUPROPION. [Interacting]
     Active Substance: BUPROPION
     Indication: PRODUCT USED FOR UNKNOWN INDICATION
     Dosage: UNK
     Route: 065
  5. OLANZAPINE. [Interacting]
     Active Substance: OLANZAPINE
     Indication: PRODUCT USED FOR UNKNOWN INDICATION
     Dosage: UNK
     Route: 065
  6. ESCITALOPRAM OXALATE. [Suspect]
     Active Substance: ESCITALOPRAM OXALATE
     Indication: PRODUCT USED FOR UNKNOWN INDICATION
     Dosage: UNK
     Route: 065

REACTIONS (17)
  - Tremor [Recovered/Resolved]
  - Drug interaction [Recovered/Resolved]
  - Communication disorder [Recovered/Resolved]
  - Arrhythmia [Recovered/Resolved]
  - Overdose [Recovered/Resolved]
  - Delirium [Recovered/Resolved]
  - Condition aggravated [Recovered/Resolved]
  - Serotonin syndrome [Recovered/Resolved]
  - Agitation [Recovered/Resolved]
  - Confusional state [Recovered/Resolved]
  - Hyperreflexia [Recovered/Resolved]
  - Hyperthermia [Recovered/Resolved]
  - Mental status changes [Recovered/Resolved]
  - Muscle rigidity [Recovered/Resolved]
  - Toxicity to various agents [Recovered/Resolved]
  - Myoclonus [Recovered/Resolved]
  - Hyperhidrosis [Recovered/Resolved]
